FAERS Safety Report 8017501-X (Version None)
Quarter: 2011Q4

REPORT INFORMATION
  Report Type: 
  Country: None (occurrence: None)
  Receive Date: 20111228
  Receipt Date: 20111228
  Transmission Date: 20120403
  Serious: Yes (Other)
  Sender: FDA-Public Use
  Company Number: None

PATIENT
  Age: 57 Year
  Sex: Female
  Weight: 73.0291 kg

DRUGS (1)
  1. REBIF [Suspect]
     Indication: MULTIPLE SCLEROSIS
     Dosage: 44 MCG 3 TIMES/WK SUBUT INJECTION
     Route: 058
     Dates: start: 20020201, end: 20100401

REACTIONS (2)
  - LIPOATROPHY [None]
  - INJECTION SITE REACTION [None]
